FAERS Safety Report 4805543-4 (Version None)
Quarter: 2005Q4

REPORT INFORMATION
  Report Type: 
  Country: None (occurrence: None)
  Receive Date: 20051021
  Receipt Date: 20051011
  Transmission Date: 20060501
  Serious: Yes (Other)
  Sender: FDA-Public Use
  Company Number: RU-BOEHRINGER INGELHEIM PHARMACEUTICALS, INC.-2005-DE-04217GD

PATIENT

DRUGS (2)
  1. PRAMIPEXOLE [Suspect]
     Indication: MULTIPLE SYSTEM ATROPHY
     Dosage: DOSE TITRATION FROM 1.5 MG/DAY TO 4.5 MG/DAY AND THEREAFTER MAINTAINED AT 4.5 MG/DAY
  2. LEVODOPA [Suspect]
     Indication: MULTIPLE SYSTEM ATROPHY
     Dosage: CONSTANT DOSE

REACTIONS (1)
  - POSTURE ABNORMAL [None]
